FAERS Safety Report 7516662-6 (Version None)
Quarter: 2011Q2

REPORT INFORMATION
  Report Type: 
  Country: None (occurrence: None)
  Receive Date: 20110601
  Receipt Date: 20110524
  Transmission Date: 20111010
  Serious: Yes (Other)
  Sender: FDA-Public Use
  Company Number: CA-ROCHE-750075

PATIENT
  Sex: Female
  Weight: 62.6 kg

DRUGS (7)
  1. MULTI-VITAMIN [Concomitant]
  2. KEPPRA [Concomitant]
  3. BEVACIZUMAB [Suspect]
     Route: 042
     Dates: start: 20101222
  4. BEVACIZUMAB [Suspect]
     Route: 042
     Dates: start: 20110427
  5. BEVACIZUMAB [Suspect]
     Indication: NON-SMALL CELL LUNG CANCER METASTATIC
     Route: 042
     Dates: start: 20100625, end: 20100819
  6. BEVACIZUMAB [Suspect]
     Route: 042
     Dates: start: 20110112
  7. DEXAMETHASONE [Concomitant]

REACTIONS (13)
  - SINUS CONGESTION [None]
  - ASTHENIA [None]
  - PAIN IN EXTREMITY [None]
  - HYPOAESTHESIA [None]
  - DIZZINESS [None]
  - FATIGUE [None]
  - ONCOLOGIC COMPLICATION [None]
  - NECK PAIN [None]
  - NASOPHARYNGITIS [None]
  - OEDEMA PERIPHERAL [None]
  - ARTHRALGIA [None]
  - INFLUENZA [None]
  - DYSPNOEA [None]
